FAERS Safety Report 9718822 (Version 1)
Quarter: 2013Q4

REPORT INFORMATION
  Report Type: Other
  Country: GB (occurrence: GB)
  Receive Date: 20131127
  Receipt Date: 20131127
  Transmission Date: 20140711
  Serious: Yes (Hospitalization)
  Sender: FDA-Public Use
  Company Number: GB-PERRIGO-13GB011887

PATIENT
  Age: 38 Year
  Sex: Male

DRUGS (6)
  1. IBUPROFEN 16028/0027 200 MG [Suspect]
     Indication: BACK PAIN
     Dosage: 600 MG, TID
     Route: 048
     Dates: start: 201202, end: 20131108
  2. SERTRALINE [Suspect]
     Indication: DEPRESSED MOOD
     Dosage: 100 MG, QD
     Route: 048
     Dates: start: 201205
  3. GABAPENTIN [Concomitant]
     Indication: PRODUCT USED FOR UNKNOWN INDICATION
     Dosage: UNK
     Route: 065
  4. SALBUTAMOL [Concomitant]
     Indication: PRODUCT USED FOR UNKNOWN INDICATION
     Dosage: UNK
     Route: 065
  5. TIOTROPIUM [Concomitant]
     Indication: PRODUCT USED FOR UNKNOWN INDICATION
     Dosage: UNK
     Route: 065
  6. TRAMADOL [Concomitant]
     Indication: PRODUCT USED FOR UNKNOWN INDICATION
     Dosage: UNK
     Route: 065

REACTIONS (2)
  - Haematemesis [Unknown]
  - Gastrointestinal haemorrhage [Recovering/Resolving]
